FAERS Safety Report 12115723 (Version 1)
Quarter: 2016Q1

REPORT INFORMATION
  Report Type: Spontaneous
  Country: US (occurrence: US)
  Receive Date: 20160225
  Receipt Date: 20160225
  Transmission Date: 20160526
  Serious: No
  Sender: FDA-Public Use
  Company Number: US-FRI-1000080137

PATIENT
  Age: 47 Year
  Sex: Female

DRUGS (1)
  1. VIIBRYD [Suspect]
     Active Substance: VILAZODONE HYDROCHLORIDE
     Indication: MAJOR DEPRESSION
     Dosage: 40MG

REACTIONS (5)
  - Memory impairment [Unknown]
  - Drug dose omission [Unknown]
  - Sleep paralysis [Unknown]
  - Paraesthesia [Unknown]
  - Aggression [Unknown]
